FAERS Safety Report 20216255 (Version 5)
Quarter: 2022Q4

REPORT INFORMATION
  Report Type: Spontaneous
  Country: US (occurrence: US)
  Receive Date: 20211222
  Receipt Date: 20221007
  Transmission Date: 20230113
  Serious: No
  Sender: FDA-Public Use
  Company Number: US-BRISTOL-MYERS SQUIBB COMPANY-BMS-2021-140134

PATIENT
  Age: 46 Year
  Sex: Female

DRUGS (1)
  1. ORENCIA [Suspect]
     Active Substance: ABATACEPT
     Indication: Rheumatoid arthritis
     Dosage: LOT NUMBER : BCUL15A WITH EXPIRY DATE 30-NOV-2023?BATCH: BCVB04A EXPIRY DATE: 01-31-2024
     Route: 058
     Dates: start: 20190702

REACTIONS (3)
  - Arthralgia [Unknown]
  - Rheumatoid arthritis [Unknown]
  - Joint swelling [Unknown]
